FAERS Safety Report 23388317 (Version 1)
Quarter: 2024Q1

REPORT INFORMATION
  Report Type: Spontaneous
  Country: US (occurrence: US)
  Receive Date: 20240110
  Receipt Date: 20240110
  Transmission Date: 20240410
  Serious: No
  Sender: FDA-Public Use
  Company Number: US-TAKEDA-2024TUS002527

PATIENT
  Age: 78 Year
  Sex: Male

DRUGS (1)
  1. TRINTELLIX [Suspect]
     Active Substance: VORTIOXETINE HYDROBROMIDE
     Indication: Major depression
     Dosage: UNK
     Route: 065

REACTIONS (10)
  - Depressed mood [Unknown]
  - Anhedonia [Unknown]
  - Fatigue [Unknown]
  - Asthenia [Unknown]
  - Feelings of worthlessness [Unknown]
  - Feeling guilty [Unknown]
  - Disturbance in attention [Unknown]
  - Abulia [Unknown]
  - Anxiety [Unknown]
  - Irritability [Unknown]
